FAERS Safety Report 11155469 (Version 1)
Quarter: 2015Q2

REPORT INFORMATION
  Report Type: Spontaneous
  Country: US (occurrence: None)
  Receive Date: 20150601
  Receipt Date: 20150601
  Transmission Date: 20150821
  Serious: Yes (Other)
  Sender: FDA-Public Use
  Company Number: None

PATIENT
  Sex: Female
  Weight: 61.24 kg

DRUGS (3)
  1. HYDROCODONE/APP GENERIC FOR NORCO 10/325 [Suspect]
     Active Substance: ACETAMINOPHEN\HYDROCODONE BITARTRATE
     Indication: SURGERY
     Route: 048
     Dates: end: 20150316
  2. HYDROCODONE/APP GENERIC FOR NORCO 10/325 [Suspect]
     Active Substance: ACETAMINOPHEN\HYDROCODONE BITARTRATE
     Indication: PAIN
     Route: 048
     Dates: end: 20150316
  3. HYDROCODONE/APP GENERIC FOR NORCO 10/325 [Suspect]
     Active Substance: ACETAMINOPHEN\HYDROCODONE BITARTRATE
     Indication: SPINAL COLUMN STENOSIS
     Route: 048
     Dates: end: 20150316

REACTIONS (4)
  - Pain [None]
  - Product quality issue [None]
  - Myalgia [None]
  - Pain in extremity [None]
